FAERS Safety Report 18615425 (Version 2)
Quarter: 2021Q1

REPORT INFORMATION
  Report Type: Report from Study
  Country: CA (occurrence: CA)
  Receive Date: 20201214
  Receipt Date: 20210112
  Transmission Date: 20210419
  Serious: Yes (Hospitalization)
  Sender: FDA-Public Use
  Company Number: NVSC2019CA094856

PATIENT
  Age: 79 Year
  Sex: Female

DRUGS (4)
  1. PREDNISONE. [Concomitant]
     Active Substance: PREDNISONE
     Indication: PRODUCT USED FOR UNKNOWN INDICATION
     Dosage: UNK
     Route: 065
  2. REVOLADE [Suspect]
     Active Substance: ELTROMBOPAG OLAMINE
     Indication: OSTEOPOROSIS
     Dosage: 5 MG
     Route: 048
     Dates: start: 20160118, end: 20201209
  3. REVOLADE [Suspect]
     Active Substance: ELTROMBOPAG OLAMINE
     Indication: IMMUNE THROMBOCYTOPENIA
     Dosage: 2 DF
     Route: 065
     Dates: start: 20200905, end: 20200920
  4. REVOLADE [Suspect]
     Active Substance: ELTROMBOPAG OLAMINE
     Dosage: 50 MG, QD
     Route: 048
     Dates: start: 20200922

REACTIONS (8)
  - Bradycardia [Unknown]
  - Wrist fracture [Unknown]
  - Syncope [Unknown]
  - Platelet disorder [Recovered/Resolved]
  - Expired product administered [Unknown]
  - Product use in unapproved indication [Unknown]
  - Malaise [Recovered/Resolved]
  - Fatigue [Recovered/Resolved]

NARRATIVE: CASE EVENT DATE: 20180601
